FAERS Safety Report 15706978 (Version 1)
Quarter: 2018Q4

REPORT INFORMATION
  Report Type: Report from Study
  Country: US (occurrence: US)
  Receive Date: 20181210
  Receipt Date: 20181210
  Transmission Date: 20190205
  Serious: Yes (Other)
  Sender: FDA-Public Use
  Company Number: US-GILEAD-2018-0376183

PATIENT
  Age: 64 Year
  Sex: Male

DRUGS (3)
  1. CARVEDILOL. [Concomitant]
     Active Substance: CARVEDILOL
     Dosage: 12.5MG BID
  2. METOPROLOL. [Concomitant]
     Active Substance: METOPROLOL
     Dosage: 50MG BID
  3. RANOLAZINE. [Suspect]
     Active Substance: RANOLAZINE
     Indication: CHEST PAIN
     Dosage: 500 MG, BID
     Route: 048
     Dates: start: 20161102, end: 20181120

REACTIONS (6)
  - Chest discomfort [Not Recovered/Not Resolved]
  - Dyspnoea [Not Recovered/Not Resolved]
  - Intentional product use issue [Not Recovered/Not Resolved]
  - Off label use [Unknown]
  - Atrial fibrillation [Not Recovered/Not Resolved]
  - Fatigue [Not Recovered/Not Resolved]

NARRATIVE: CASE EVENT DATE: 20181120
